FAERS Safety Report 4782861-X (Version None)
Quarter: 2005Q3

REPORT INFORMATION
  Report Type: 
  Country: None (occurrence: None)
  Receive Date: 20050914
  Receipt Date: 20040730
  Transmission Date: 20060218
  Serious: Yes (Death)
  Sender: FDA-Public Use
  Company Number: 163-20785-04070239

PATIENT
  Age: 44 Year
  Sex: Male

DRUGS (1)
  1. THALOMID [Suspect]
     Indication: GLIOBLASTOMA MULTIFORME
     Dosage: 100 MG - 200 MG DAILY, 1 WEEK TO 2 WEEKS, ORAL
     Route: 048
     Dates: start: 20040520, end: 20040101

REACTIONS (2)
  - DEATH [None]
  - DISEASE PROGRESSION [None]
